FAERS Safety Report 12287599 (Version 3)
Quarter: 2016Q2

REPORT INFORMATION
  Report Type: Spontaneous
  Country: ES (occurrence: ES)
  Receive Date: 20160420
  Receipt Date: 20160606
  Transmission Date: 20160815
  Serious: Yes (Other)
  Sender: FDA-Public Use
  Company Number: ES-SA-2016SA078128

PATIENT
  Sex: Male

DRUGS (2)
  1. RENAGEL [Suspect]
     Active Substance: SEVELAMER HYDROCHLORIDE
     Indication: HYPERPHOSPHATAEMIA
     Route: 065
     Dates: start: 201603
  2. RENAGEL [Suspect]
     Active Substance: SEVELAMER HYDROCHLORIDE
     Indication: HYPERPHOSPHATAEMIA
     Dosage: DOSAGE: 10 TABLETS: 0-6-4
     Route: 065
     Dates: end: 201603

REACTIONS (3)
  - Pseudopolyposis [Unknown]
  - Colitis [Unknown]
  - Gastrointestinal haemorrhage [Recovered/Resolved]

NARRATIVE: CASE EVENT DATE: 2014
